FAERS Safety Report 16010937 (Version 1)
Quarter: 2019Q1

REPORT INFORMATION
  Report Type: Spontaneous
  Country: US (occurrence: US)
  Receive Date: 20190227
  Receipt Date: 20190227
  Transmission Date: 20190418
  Serious: No
  Sender: FDA-Public Use
  Company Number: US-ASTRAZENECA-2018SE95158

PATIENT
  Sex: Female

DRUGS (6)
  1. SYMBICORT [Suspect]
     Active Substance: BUDESONIDE\FORMOTEROL FUMARATE DIHYDRATE
     Indication: CHRONIC OBSTRUCTIVE PULMONARY DISEASE
     Dosage: 160/ 4.5 MCG, ONE PUFF, TWO TIMES A DAY
     Route: 055
  2. LEVOTHYROXINE. [Concomitant]
     Active Substance: LEVOTHYROXINE
     Indication: THYROID DISORDER
     Route: 048
  3. SUPER B COMPLEX WITH VITAMIN C [Concomitant]
     Indication: BONE DISORDER
     Route: 048
  4. SUPER B COMPLEX WITH VITAMIN C [Concomitant]
     Indication: ASTHENIA
     Route: 048
  5. METFORMIN [Concomitant]
     Active Substance: METFORMIN HYDROCHLORIDE
     Route: 048
  6. SYMBICORT [Suspect]
     Active Substance: BUDESONIDE\FORMOTEROL FUMARATE DIHYDRATE
     Indication: CHRONIC OBSTRUCTIVE PULMONARY DISEASE
     Dosage: 160/ 4.5 MCG, TWO INHALATIONS, TWICE A DAY
     Route: 055
     Dates: start: 2015

REACTIONS (4)
  - Intentional product misuse [Unknown]
  - Type 2 diabetes mellitus [Unknown]
  - Device defective [Unknown]
  - Underdose [Unknown]
